FAERS Safety Report 5167931-9 (Version None)
Quarter: 2006Q4

REPORT INFORMATION
  Report Type: 
  Country: None (occurrence: None)
  Receive Date: 20061208
  Receipt Date: 20051018
  Transmission Date: 20070319
  Serious: No
  Sender: FDA-Public Use
  Company Number: US-GLAXOSMITHKLINE-A0578665A

PATIENT
  Age: 57 Year
  Sex: Female

DRUGS (5)
  1. AVANDAMET [Suspect]
     Dosage: 1TAB TWICE PER DAY
     Route: 048
     Dates: start: 20051015
  2. ATENOLOL [Concomitant]
  3. DIOVAN [Concomitant]
  4. CALCIUM [Concomitant]
  5. GLUCOVANCE [Concomitant]
     Dosage: 500MG UNKNOWN

REACTIONS (1)
  - BLOOD GLUCOSE INCREASED [None]
